FAERS Safety Report 18410541 (Version 2)
Quarter: 2020Q4

REPORT INFORMATION
  Report Type: Spontaneous
  Country: US (occurrence: US)
  Receive Date: 20201021
  Receipt Date: 20201201
  Transmission Date: 20210114
  Serious: Yes (Other)
  Sender: FDA-Public Use
  Company Number: US-PFIZER INC-2020391123

PATIENT
  Age: 69 Year
  Sex: Female

DRUGS (2)
  1. DAURISMO [Suspect]
     Active Substance: GLASDEGIB
     Indication: ACUTE MYELOID LEUKAEMIA
     Dosage: 100 MG
  2. DAURISMO [Suspect]
     Active Substance: GLASDEGIB
     Dosage: 50 MG, DAILY  (PO SOLID 25 MG TABLET, 50 MG, PO,DAILY, DAURISMO 50 MG, TAKE 1 TAB DAILY)
     Route: 048

REACTIONS (2)
  - Off label use [Unknown]
  - Neutropenia [Unknown]
